FAERS Safety Report 21810419 (Version 1)
Quarter: 2023Q1

REPORT INFORMATION
  Report Type: Spontaneous
  Country: BR (occurrence: BR)
  Receive Date: 20230103
  Receipt Date: 20230103
  Transmission Date: 20230418
  Serious: Yes (Other)
  Sender: FDA-Public Use
  Company Number: BR-BEH-2022153655

PATIENT
  Sex: Male

DRUGS (2)
  1. HUMAN IMMUNOGLOBULIN G [Suspect]
     Active Substance: HUMAN IMMUNOGLOBULIN G
     Indication: Hypogammaglobulinaemia
     Dosage: UNK, QMT
     Route: 042
  2. RITUXIMAB [Concomitant]
     Active Substance: RITUXIMAB
     Indication: Chronic lymphocytic leukaemia
     Dosage: 8 CYCLES
     Route: 065

REACTIONS (8)
  - Type IV hypersensitivity reaction [Recovered/Resolved]
  - Skin abrasion [Recovered/Resolved]
  - Eczema [Recovered/Resolved]
  - Rash follicular [Recovered/Resolved]
  - Rash pustular [Recovered/Resolved]
  - Rash pruritic [Recovered/Resolved]
  - Eczema [Recovered/Resolved]
  - Lichenoid keratosis [Recovered/Resolved]
